FAERS Safety Report 12708356 (Version 1)
Quarter: 2016Q3

REPORT INFORMATION
  Report Type: Report from Study
  Country: US (occurrence: US)
  Receive Date: 20160901
  Receipt Date: 20160901
  Transmission Date: 20161109
  Serious: Yes (Other)
  Sender: FDA-Public Use
  Company Number: US-ARIAD-2013US002310

PATIENT
  Age: 39 Year
  Sex: Female

DRUGS (3)
  1. ICLUSIG [Suspect]
     Active Substance: PONATINIB
     Indication: CHRONIC MYELOID LEUKAEMIA
     Dosage: 45 MG, UNK
     Route: 048
     Dates: start: 201306
  2. DURAGESIC [Concomitant]
     Active Substance: FENTANYL
     Indication: PLEURISY
     Dosage: 75 MCG, QOD
     Route: 062
  3. PERCOCET [Concomitant]
     Active Substance: ACETAMINOPHEN\OXYCODONE HYDROCHLORIDE
     Indication: PAIN MANAGEMENT
     Dosage: 10 MG/325 MG, PRN

REACTIONS (5)
  - Skin exfoliation [Not Recovered/Not Resolved]
  - Pleuritic pain [Unknown]
  - Back pain [Unknown]
  - Skin burning sensation [Unknown]
  - Dry skin [Not Recovered/Not Resolved]

NARRATIVE: CASE EVENT DATE: 201306
